FAERS Safety Report 14036998 (Version 1)
Quarter: 2017Q4

REPORT INFORMATION
  Report Type: Spontaneous
  Country: DE (occurrence: DE)
  Receive Date: 20171004
  Receipt Date: 20171004
  Transmission Date: 20180321
  Serious: Yes (Congenital Anomaly)
  Sender: FDA-Public Use
  Company Number: DE-TORRENT-00007169

PATIENT
  Sex: Female
  Weight: 1 kg

DRUGS (4)
  1. MAGNESIUM SULFATE. [Concomitant]
     Active Substance: MAGNESIUM SULFATE
  2. VENLAFAXINE [Suspect]
     Active Substance: VENLAFAXINE HYDROCHLORIDE
  3. PRESINOL [Concomitant]
     Active Substance: METHYLDOPA
  4. FOLIO FORTE [Concomitant]
     Active Substance: FOLIC ACID\VITAMINS

REACTIONS (3)
  - Congenital hydronephrosis [Recovering/Resolving]
  - Foetal exposure during pregnancy [Unknown]
  - Ureteric stenosis [Recovering/Resolving]
